FAERS Safety Report 6930122-2 (Version None)
Quarter: 2010Q3

REPORT INFORMATION
  Report Type: 
  Country: None (occurrence: None)
  Receive Date: 20100817
  Receipt Date: 20100817
  Transmission Date: 20110219
  Serious: Yes (Life-Threatening, Hospitalization, Disabling)
  Sender: FDA-Public Use
  Company Number: None

PATIENT
  Sex: Female
  Weight: 144.2439 kg

DRUGS (1)
  1. CLEOCIN [Suspect]
     Indication: VAGINAL INFECTION
     Dosage: 1 TAKE NIGHTLY I THINK 1 WEEK VAGINALLY
     Route: 067
     Dates: start: 20090301

REACTIONS (2)
  - COLITIS ULCERATIVE [None]
  - HAEMATOCHEZIA [None]
